FAERS Safety Report 24899569 (Version 2)
Quarter: 2025Q1

REPORT INFORMATION
  Report Type: Spontaneous
  Country: CN (occurrence: CN)
  Receive Date: 20250129
  Receipt Date: 20250206
  Transmission Date: 20250408
  Serious: Yes (Hospitalization, Other)
  Sender: PFIZER
  Company Number: CN-PFIZER INC-PV202500010056

PATIENT
  Age: 53 Year
  Sex: Female
  Weight: 50 kg

DRUGS (8)
  1. ZYVOX [Suspect]
     Active Substance: LINEZOLID
     Indication: Pulmonary tuberculosis
     Dosage: 0.6 G, 1X/DAY
     Route: 048
     Dates: start: 20241219, end: 20250111
  2. VORICONAZOLE [Suspect]
     Active Substance: VORICONAZOLE
     Indication: Tuberculosis
     Dosage: 100 MG, 2X/DAY
     Route: 048
     Dates: start: 20241219, end: 20241229
  3. VORICONAZOLE [Suspect]
     Active Substance: VORICONAZOLE
     Indication: Antifungal treatment
  4. SULFAMETHOXAZOLE [Suspect]
     Active Substance: SULFAMETHOXAZOLE
     Indication: Pulmonary tuberculosis
     Dosage: 0.96 G, 2X/DAY
     Route: 048
     Dates: start: 20250110, end: 20250112
  5. ETHAMBUTOL HYDROCHLORIDE [Suspect]
     Active Substance: ETHAMBUTOL HYDROCHLORIDE
     Indication: Tuberculosis
     Dosage: 0.75, 1X/DAY
     Route: 048
     Dates: start: 20241219, end: 20250111
  6. ETHAMBUTOL HYDROCHLORIDE [Suspect]
     Active Substance: ETHAMBUTOL HYDROCHLORIDE
     Indication: Antifungal treatment
  7. CLARITHROMYCIN [Suspect]
     Active Substance: CLARITHROMYCIN
     Indication: Tuberculosis
     Dosage: 0.5, 1X/DAY
     Route: 048
  8. CLARITHROMYCIN [Suspect]
     Active Substance: CLARITHROMYCIN
     Indication: Antifungal treatment

REACTIONS (7)
  - Platelet count decreased [Recovering/Resolving]
  - Haemorrhage [Recovering/Resolving]
  - Transaminases increased [Unknown]
  - Asthenia [Unknown]
  - Vision blurred [Recovering/Resolving]
  - Amnesia [Unknown]
  - Off label use [Unknown]

NARRATIVE: CASE EVENT DATE: 20241219
